FAERS Safety Report 7446584-0 (Version None)
Quarter: 2011Q2

REPORT INFORMATION
  Report Type: 
  Country: None (occurrence: None)
  Receive Date: 20110429
  Receipt Date: 20110426
  Transmission Date: 20111010
  Serious: Yes (Hospitalization, Disabling)
  Sender: FDA-Public Use
  Company Number: JP-MERCK-1103USA02887

PATIENT
  Age: 79 Year
  Sex: Male

DRUGS (9)
  1. PARIET [Concomitant]
     Indication: ABDOMINAL DISCOMFORT
     Route: 048
     Dates: start: 20101106, end: 20110311
  2. ACECOL [Concomitant]
     Indication: HYPERTENSION
     Route: 048
     Dates: start: 20101107, end: 20110311
  3. AMARYL [Concomitant]
     Route: 048
     Dates: start: 20101218, end: 20110114
  4. ARTIST [Concomitant]
     Indication: HYPERTENSION
     Route: 048
     Dates: end: 20110311
  5. ITOROL [Concomitant]
     Route: 048
     Dates: start: 20101107, end: 20110311
  6. ASPENON [Concomitant]
     Indication: ARRHYTHMIA
     Route: 048
     Dates: start: 20101117, end: 20110311
  7. WARFARIN POTASSIUM [Concomitant]
     Route: 048
     Dates: start: 20101107
  8. JANUVIA [Suspect]
     Indication: DIABETES MELLITUS
     Route: 048
     Dates: start: 20110115, end: 20110310
  9. LASIX [Concomitant]
     Route: 048

REACTIONS (1)
  - INTERSTITIAL LUNG DISEASE [None]
